FAERS Safety Report 19940740 (Version 3)
Quarter: 2021Q4

REPORT INFORMATION
  Report Type: Spontaneous
  Country: US (occurrence: US)
  Receive Date: 20211011
  Receipt Date: 20211116
  Transmission Date: 20220303
  Serious: No
  Sender: FDA-Public Use
  Company Number: US-AMGEN INC.-USASP2021154830

PATIENT
  Age: 38 Year
  Sex: Male
  Weight: 106.57 kg

DRUGS (2)
  1. AIMOVIG [Suspect]
     Active Substance: ERENUMAB-AOOE
     Indication: Migraine prophylaxis
     Dosage: 140 MILLIGRAM (EVERY 28 DAYS)
     Route: 058
     Dates: start: 20210423
  2. IBUPROFEN [Concomitant]
     Active Substance: IBUPROFEN

REACTIONS (4)
  - Wrong technique in product usage process [Unknown]
  - Device difficult to use [Unknown]
  - Accidental exposure to product [Unknown]
  - Incorrect dose administered by device [Unknown]

NARRATIVE: CASE EVENT DATE: 20211004
